FAERS Safety Report 9607372 (Version 1)
Quarter: 2013Q4

REPORT INFORMATION
  Report Type: Spontaneous
  Country: US (occurrence: None)
  Receive Date: 20131007
  Receipt Date: 20131007
  Transmission Date: 20140711
  Serious: Yes (Other)
  Sender: FDA-Public Use
  Company Number: None

PATIENT
  Age: 48 Year
  Sex: Female

DRUGS (1)
  1. AMLODIPINE [Suspect]
     Indication: HYPERTENSION
     Route: 048

REACTIONS (21)
  - Erythema [None]
  - Ocular hyperaemia [None]
  - Eye pruritus [None]
  - Food allergy [None]
  - Joint stiffness [None]
  - Weight increased [None]
  - Disturbance in attention [None]
  - Feeling abnormal [None]
  - Hot flush [None]
  - Blood cholesterol increased [None]
  - Palpitations [None]
  - Alopecia [None]
  - Dry mouth [None]
  - Constipation [None]
  - Breast tenderness [None]
  - Breast enlargement [None]
  - Swollen tongue [None]
  - Blister [None]
  - Dysphagia [None]
  - Sunburn [None]
  - Product substitution issue [None]
